FAERS Safety Report 18605199 (Version 1)
Quarter: 2020Q4

REPORT INFORMATION
  Report Type: Report from Study
  Country: GB (occurrence: GB)
  Receive Date: 20201211
  Receipt Date: 20201211
  Transmission Date: 20210114
  Serious: Yes (Death, Other)
  Sender: FDA-Public Use
  Company Number: GB-PFIZER INC-2020488512

PATIENT
  Age: 38 Year
  Sex: Male

DRUGS (9)
  1. MIRTAZAPINE. [Suspect]
     Active Substance: MIRTAZAPINE
     Dosage: UNK
  2. PREGABALIN. [Suspect]
     Active Substance: PREGABALIN
     Dosage: UNK
  3. NORDAZEPAM [Suspect]
     Active Substance: NORDAZEPAM
     Dosage: UNK
  4. MORPHINE SULFATE. [Suspect]
     Active Substance: MORPHINE SULFATE
     Dosage: UNK
  5. CODEINE [Suspect]
     Active Substance: CODEINE
     Dosage: UNK
  6. METHADONE [Suspect]
     Active Substance: METHADONE HYDROCHLORIDE
     Dosage: UNK
  7. DIAZEPAM. [Suspect]
     Active Substance: DIAZEPAM
     Dosage: UNK
  8. LORAZEPAM. [Suspect]
     Active Substance: LORAZEPAM
     Dosage: UNK
  9. ETIZOLAM [Suspect]
     Active Substance: ETIZOLAM
     Dosage: UNK
     Route: 048

REACTIONS (2)
  - Drug abuse [Fatal]
  - Toxicity to various agents [Fatal]
